FAERS Safety Report 9288298 (Version 1)
Quarter: 2013Q2

REPORT INFORMATION
  Report Type: Spontaneous
  Country: FR (occurrence: FR)
  Receive Date: 20130514
  Receipt Date: 20130514
  Transmission Date: 20140414
  Serious: Yes (Other)
  Sender: FDA-Public Use
  Company Number: FR-MYLANLABS-2013S1009583

PATIENT
  Age: 60 Year
  Sex: Male

DRUGS (1)
  1. VANCOMYCINE [Suspect]
     Indication: SEPTIC SHOCK
     Route: 041
     Dates: start: 20130227, end: 20130228

REACTIONS (2)
  - Incorrect dose administered [Recovered/Resolved]
  - Antibiotic level above therapeutic [Unknown]
